FAERS Safety Report 9065116 (Version 1)
Quarter: 2013Q1

REPORT INFORMATION
  Report Type: Spontaneous
  Country: US (occurrence: US)
  Receive Date: 20130128
  Receipt Date: 20130128
  Transmission Date: 20140127
  Serious: Yes (Hospitalization)
  Sender: FDA-Public Use
  Company Number: PHEH2013US002152

PATIENT
  Sex: Female

DRUGS (4)
  1. DIOVAN [Suspect]
  2. LIPITOR [Concomitant]
  3. NADOLOL [Concomitant]
  4. AMLODIPINE [Concomitant]

REACTIONS (1)
  - Cholelithiasis [Unknown]
